FAERS Safety Report 19593122 (Version 1)
Quarter: 2021Q3

REPORT INFORMATION
  Report Type: Spontaneous
  Country: US (occurrence: US)
  Receive Date: 20210722
  Receipt Date: 20210722
  Transmission Date: 20211014
  Serious: Yes (Other)
  Sender: FDA-Public Use
  Company Number: None

PATIENT
  Age: 18 Year
  Sex: Female
  Weight: 76.5 kg

DRUGS (1)
  1. AVSOLA [Suspect]
     Active Substance: INFLIXIMAB-AXXQ
     Indication: HIDRADENITIS
     Dosage: ?          OTHER FREQUENCY:ONE;?
     Route: 042
     Dates: start: 20210702, end: 20210702

REACTIONS (3)
  - Vomiting [None]
  - Peripheral swelling [None]
  - Infusion site warmth [None]

NARRATIVE: CASE EVENT DATE: 20210702
